FAERS Safety Report 8041981-7 (Version None)
Quarter: 2012Q1

REPORT INFORMATION
  Report Type: 
  Country: None (occurrence: None)
  Receive Date: 20120112
  Receipt Date: 20120106
  Transmission Date: 20120608
  Serious: Yes (Death)
  Sender: FDA-Public Use
  Company Number: PHHY2012JP001670

PATIENT

DRUGS (1)
  1. TEGRETOL [Suspect]
     Route: 048

REACTIONS (1)
  - THERMAL BURN [None]
